FAERS Safety Report 24954015 (Version 1)
Quarter: 2025Q1

REPORT INFORMATION
  Report Type: Spontaneous
  Country: CN (occurrence: CN)
  Receive Date: 20250211
  Receipt Date: 20250211
  Transmission Date: 20250409
  Serious: Yes (Other)
  Sender: NOVARTIS
  Company Number: CN-002147023-NVSC2025CN021803

PATIENT
  Age: 57 Year
  Sex: Female

DRUGS (1)
  1. GLIVEC [Suspect]
     Active Substance: IMATINIB MESYLATE
     Indication: Gastrointestinal stromal tumour
     Route: 048
     Dates: start: 20191010

REACTIONS (7)
  - Tumour rupture [Unknown]
  - Gastrointestinal disorder [Unknown]
  - Anaemia [Unknown]
  - Platelet count decreased [Unknown]
  - Loose tooth [Unknown]
  - Generalised oedema [Unknown]
  - Hyperaemia [Unknown]
